FAERS Safety Report 25895605 (Version 1)
Quarter: 2025Q4

REPORT INFORMATION
  Report Type: Spontaneous
  Country: US (occurrence: None)
  Receive Date: 20251007
  Receipt Date: 20251007
  Transmission Date: 20260117
  Serious: Yes (unspecified)
  Sender: FDA-CTU
  Company Number: None

PATIENT
  Age: 49 Year
  Sex: Female
  Weight: 71.1 kg

DRUGS (1)
  1. SEMAGLUTIDE [Suspect]
     Active Substance: SEMAGLUTIDE
     Dates: start: 20251004

REACTIONS (3)
  - Vomiting [None]
  - Bedridden [None]
  - Incorrect dose administered [None]

NARRATIVE: CASE EVENT DATE: 20251004
